FAERS Safety Report 10020636 (Version 1)
Quarter: 2014Q1

REPORT INFORMATION
  Report Type: Spontaneous
  Country: US (occurrence: US)
  Receive Date: 20140319
  Receipt Date: 20140319
  Transmission Date: 20141002
  Serious: Yes (Hospitalization, Other)
  Sender: FDA-Public Use
  Company Number: US-BRISTOL-MYERS SQUIBB COMPANY-20417259

PATIENT
  Age: 9 Year
  Sex: Female
  Weight: 32.88 kg

DRUGS (7)
  1. ABILIFY TABS 20 MG [Suspect]
     Indication: AUTISM
  2. COGENTIN [Suspect]
  3. VIMPAT [Concomitant]
  4. ZONEGRAN [Concomitant]
  5. ZOLOFT [Concomitant]
  6. METFORMIN [Concomitant]
  7. KLONOPIN [Concomitant]

REACTIONS (5)
  - Aggression [Unknown]
  - Weight decreased [Unknown]
  - Diet refusal [Unknown]
  - Diabetes mellitus [Unknown]
  - Off label use [Unknown]
